FAERS Safety Report 9101787 (Version 1)
Quarter: 2013Q1

REPORT INFORMATION
  Report Type: Spontaneous
  Country: US (occurrence: US)
  Receive Date: 20130218
  Receipt Date: 20130218
  Transmission Date: 20140127
  Serious: No
  Sender: FDA-Public Use
  Company Number: US-009507513-1302USA006743

PATIENT
  Age: 66 Year
  Sex: Female
  Weight: 65.76 kg

DRUGS (10)
  1. MIRALAX [Suspect]
     Indication: CONSTIPATION
     Dosage: 17 G, QPM
     Route: 048
     Dates: start: 20120813, end: 20120913
  2. MIRALAX [Suspect]
     Indication: MEDICAL OBSERVATION
  3. LAMICTAL [Concomitant]
     Indication: BIPOLAR DISORDER
     Dosage: UNK, UNKNOWN
  4. ABILIFY [Concomitant]
     Indication: BIPOLAR DISORDER
     Dosage: UNK, UNKNOWN
  5. KLONOPIN [Concomitant]
     Indication: BIPOLAR DISORDER
     Dosage: UNK, UNKNOWN
  6. NEURONTIN [Concomitant]
     Indication: BIPOLAR DISORDER
     Dosage: UNK, UNKNOWN
  7. PAXIL [Concomitant]
     Indication: BIPOLAR DISORDER
     Dosage: UNK, UNKNOWN
  8. ASPIRIN [Concomitant]
     Indication: BIPOLAR DISORDER
     Dosage: UNK, UNKNOWN
  9. CITRICAL [Concomitant]
     Indication: BIPOLAR DISORDER
     Dosage: UNK, UNKNOWN
  10. CARAFATE [Concomitant]
     Indication: GASTRIC ULCER
     Dosage: UNK, UNKNOWN

REACTIONS (4)
  - Gastrointestinal infection [Unknown]
  - Abdominal pain upper [Unknown]
  - Malaise [Unknown]
  - Incorrect drug administration duration [Unknown]
